FAERS Safety Report 11167259 (Version 1)
Quarter: 2015Q2

REPORT INFORMATION
  Report Type: Report from Study
  Country: JP (occurrence: JP)
  Receive Date: 20150605
  Receipt Date: 20150605
  Transmission Date: 20150821
  Serious: Yes (Hospitalization)
  Sender: FDA-Public Use
  Company Number: JP-B.I. PHARMACEUTICALS,INC./RIDGEFIELD-2015-BI-30043NB

PATIENT
  Age: 94 Year
  Sex: Female
  Weight: 51.9 kg

DRUGS (15)
  1. CERCINE [Concomitant]
     Active Substance: DIAZEPAM
     Dosage: 2 MG
     Route: 048
  2. METHYCOOL [Concomitant]
     Active Substance: METHYLCOBALAMIN
     Dosage: 1.5 MG
     Route: 048
  3. MICAMLO [Concomitant]
     Active Substance: AMLODIPINE BESYLATE\TELMISARTAN
     Route: 048
  4. MOHRUS TAPE [Concomitant]
     Active Substance: KETOPROFEN
     Route: 062
  5. URSODEOXYCHOLIC ACID [Concomitant]
     Active Substance: URSODIOL
     Dosage: 300 MG
     Route: 048
  6. BROTIZOLAM [Concomitant]
     Active Substance: BROTIZOLAM
     Dosage: 0.5 MG
     Route: 048
  7. FULPEN [Concomitant]
     Dosage: 12 MG
     Route: 048
  8. METGLUCO [Concomitant]
     Active Substance: METFORMIN HYDROCHLORIDE
     Indication: TYPE 2 DIABETES MELLITUS
     Dosage: 500 MG
     Route: 048
  9. UNKNOWNDRUG [Concomitant]
     Active Substance: UNSPECIFIED INGREDIENT
     Dosage: 7.5 G
     Route: 048
  10. LOXOPROFEN SODIUM HYDRATE [Concomitant]
     Active Substance: LOXOPROFEN SODIUM DIHYDRATE
     Dosage: 120 MG
     Route: 048
  11. TROXSIN [Concomitant]
     Dosage: 300 MG
     Route: 048
  12. TRAZENTA [Suspect]
     Active Substance: LINAGLIPTIN
     Indication: TYPE 2 DIABETES MELLITUS
     Dosage: 5 MG
     Route: 048
     Dates: start: 20141017
  13. EVISTA [Concomitant]
     Active Substance: RALOXIFENE HYDROCHLORIDE
     Dosage: 60 MG
     Route: 048
  14. CELECOX [Concomitant]
     Active Substance: CELECOXIB
     Dosage: 200 MG
     Route: 048
  15. LYRICA [Concomitant]
     Active Substance: PREGABALIN
     Dosage: 75 MG
     Route: 048

REACTIONS (1)
  - Dizziness [Recovered/Resolved]

NARRATIVE: CASE EVENT DATE: 20150302
